FAERS Safety Report 11396805 (Version 2)
Quarter: 2015Q3

REPORT INFORMATION
  Report Type: Report from Study
  Country: BR (occurrence: BR)
  Receive Date: 20150819
  Receipt Date: 20150923
  Transmission Date: 20151125
  Serious: No
  Sender: FDA-Public Use
  Company Number: PHHY2015BR064467

PATIENT
  Age: 86 Year
  Sex: Female
  Weight: 60 kg

DRUGS (1)
  1. DIOVAN TRIPLE [Suspect]
     Active Substance: AMLODIPINE BESYLATE\HYDROCHLOROTHIAZIDE\VALSARTAN
     Indication: BLOOD PRESSURE ABNORMAL
     Dosage: 1 DF, QD
     Route: 065
     Dates: start: 2009

REACTIONS (5)
  - Metabolic disorder [Unknown]
  - Pain in extremity [Unknown]
  - Nasopharyngitis [Unknown]
  - Oedema peripheral [Recovering/Resolving]
  - Blood calcium decreased [Recovering/Resolving]
